FAERS Safety Report 8953593 (Version 1)
Quarter: 2012Q4

REPORT INFORMATION
  Report Type: 
  Country: AU (occurrence: AU)
  Receive Date: 20121206
  Receipt Date: 20121206
  Transmission Date: 20130627
  Serious: Yes (Hospitalization)
  Sender: FDA-Public Use
  Company Number: AU-ASTRAZENECA-2012SE90118

PATIENT
  Age: 12884 Day
  Sex: Female

DRUGS (13)
  1. FENTANYL [Suspect]
     Route: 042
     Dates: start: 20120906, end: 20120906
  2. TRAMADOL HYDROCHLORIDE [Suspect]
     Route: 065
  3. PROPOFOL [Suspect]
     Route: 042
     Dates: start: 20120906, end: 20120906
  4. MORPHINE [Suspect]
     Route: 065
  5. KETAMINE HYDROCHLORIDE [Suspect]
     Route: 042
  6. MIDAZOLAM [Suspect]
     Route: 042
     Dates: start: 20120906, end: 20120906
  7. ROCURONIUM BROMIDE [Suspect]
     Route: 042
     Dates: start: 20120906, end: 20120906
  8. CEPHAZOLIN SODIUM [Concomitant]
     Route: 042
     Dates: start: 20120906, end: 20120906
  9. DROPERIDOL [Concomitant]
     Route: 042
     Dates: start: 20120906, end: 20120906
  10. METRONIDAZOLE [Concomitant]
     Route: 042
     Dates: start: 20120906, end: 20120906
  11. ONDANSETRON HYDROCHLORIDE DIHYDRATE [Concomitant]
     Route: 042
     Dates: start: 20120906, end: 20120906
  12. PARACETAMOL [Concomitant]
  13. PARECOXIB SODIUM [Concomitant]

REACTIONS (5)
  - Respiratory depression [Recovered/Resolved]
  - Dizziness [Unknown]
  - Dizziness [Unknown]
  - Sedation [Unknown]
  - Nausea [Unknown]
